FAERS Safety Report 15133697 (Version 2)
Quarter: 2018Q3

REPORT INFORMATION
  Report Type: Spontaneous
  Country: GB (occurrence: GB)
  Receive Date: 20180712
  Receipt Date: 20180801
  Transmission Date: 20181010
  Serious: Yes (Hospitalization, Disabling, Other)
  Sender: FDA-Public Use
  Company Number: GB-CPL-000523

PATIENT
  Age: 93 Year
  Sex: Female

DRUGS (3)
  1. DONEPEZIL. [Suspect]
     Active Substance: DONEPEZIL
     Indication: DEMENTIA ALZHEIMER^S TYPE
     Dosage: 10 MG DAILY
     Route: 048
  2. CALCIUM [Concomitant]
     Active Substance: CALCIUM
  3. DOCUSATE [Concomitant]
     Active Substance: DOCUSATE

REACTIONS (1)
  - Myoclonus [Recovered/Resolved]
